FAERS Safety Report 18579442 (Version 1)
Quarter: 2020Q4

REPORT INFORMATION
  Report Type: Report from Study
  Country: None (occurrence: FR)
  Receive Date: 20201204
  Receipt Date: 20201204
  Transmission Date: 20210114
  Serious: Yes (Death)
  Sender: FDA-Public Use
  Company Number: FR-COEPTIS PHARMACEUTICALS, INC.-COE-2020-000074

PATIENT

DRUGS (10)
  1. PARACETAMOL [Suspect]
     Active Substance: ACETAMINOPHEN
  2. HYDROXYZINE [Suspect]
     Active Substance: HYDROXYZINE HYDROCHLORIDE
  3. AMLODIPINE [Suspect]
     Active Substance: AMLODIPINE BESYLATE
  4. PSEUDOEPHEDRINE. [Suspect]
     Active Substance: PSEUDOEPHEDRINE HYDROCHLORIDE
  5. DESCHLORPHENIRAMINE [Suspect]
     Active Substance: DEXCHLORPHENIRAMINE
  6. CETIRIZINE [Suspect]
     Active Substance: CETIRIZINE HYDROCHLORIDE
  7. ZOLPIDEM [Suspect]
     Active Substance: ZOLPIDEM TARTRATE
  8. SALICYLIC ACID. [Suspect]
     Active Substance: SALICYLIC ACID
  9. ATORVASTATINE [Suspect]
     Active Substance: ATORVASTATIN
  10. IBUPROFEN. [Suspect]
     Active Substance: IBUPROFEN

REACTIONS (1)
  - Toxicity to various agents [Fatal]
